FAERS Safety Report 7014658-4 (Version None)
Quarter: 2010Q3

REPORT INFORMATION
  Report Type: 
  Country: None (occurrence: None)
  Receive Date: 20100927
  Receipt Date: 20100917
  Transmission Date: 20110219
  Serious: Yes (Death)
  Sender: FDA-Public Use
  Company Number: TN-ROCHE-724739

PATIENT
  Sex: Female
  Weight: 110 kg

DRUGS (3)
  1. PEGASYS [Suspect]
     Route: 058
     Dates: start: 20090314
  2. PEGASYS [Suspect]
     Route: 058
  3. COPEGUS [Suspect]
     Route: 048

REACTIONS (4)
  - ERYSIPELAS [None]
  - GRANULOCYTOPENIA [None]
  - OESOPHAGEAL VARICES HAEMORRHAGE [None]
  - SEPTIC SHOCK [None]
